FAERS Safety Report 8887120 (Version 1)
Quarter: 2012Q4

REPORT INFORMATION
  Report Type: 
  Country: SE (occurrence: SE)
  Receive Date: 20121105
  Receipt Date: 20121105
  Transmission Date: 20130627
  Serious: Yes (Hospitalization)
  Sender: FDA-Public Use
  Company Number: SE-PFIZER INC-2012271576

PATIENT
  Age: 78 Year
  Sex: Female
  Weight: 81.63 kg

DRUGS (2)
  1. GENOTROPIN [Suspect]
     Dosage: 0.6 mg, 1x/day,7 injections/week
     Route: 058
     Dates: start: 19990210
  2. SIMVASTATIN [Concomitant]
     Indication: HYPERLIPIDAEMIA
     Dosage: UNK
     Dates: start: 20050205

REACTIONS (2)
  - Uterine cancer [Unknown]
  - Ovarian cancer [Unknown]
